FAERS Safety Report 11201593 (Version 1)
Quarter: 2015Q2

REPORT INFORMATION
  Report Type: Spontaneous
  Country: US (occurrence: None)
  Receive Date: 20150618
  Receipt Date: 20150618
  Transmission Date: 20150821
  Serious: Yes (Life-Threatening, Hospitalization)
  Sender: FDA-Public Use
  Company Number: None

PATIENT
  Age: 65 Year
  Sex: Male

DRUGS (1)
  1. DEFINITY [Suspect]
     Active Substance: PERFLUTREN
     Indication: STRESS ECHOCARDIOGRAM
     Route: 042
     Dates: start: 20150501

REACTIONS (3)
  - Ventricular fibrillation [None]
  - Myocardial infarction [None]
  - Cardio-respiratory arrest [None]

NARRATIVE: CASE EVENT DATE: 20150501
